FAERS Safety Report 6593547-3 (Version None)
Quarter: 2010Q1

REPORT INFORMATION
  Report Type: 
  Country: None (occurrence: None)
  Receive Date: 20100222
  Receipt Date: 20091001
  Transmission Date: 20100710
  Serious: Yes (Hospitalization, Other)
  Sender: FDA-Public Use
  Company Number: US-BRISTOL-MYERS SQUIBB COMPANY-14704845

PATIENT
  Age: 71 Year
  Sex: Female
  Weight: 83 kg

DRUGS (14)
  1. ORENCIA [Suspect]
     Indication: RHEUMATOID ARTHRITIS
     Dosage: 2ND INF ON 02APR09,LOT#8JH1494,EXP DATE:09/2011 3RD INF ON 24APR09,LOT#8K41832,EXP DATE:09/2011
     Route: 042
     Dates: start: 20090319
  2. ALLOPURINOL [Concomitant]
     Route: 048
  3. ASPIRIN [Concomitant]
     Route: 048
  4. PLAVIX [Concomitant]
     Route: 048
  5. LASIX [Concomitant]
     Route: 048
  6. LISINOPRIL [Concomitant]
     Route: 048
  7. METOPROLOL TARTRATE [Concomitant]
     Route: 048
  8. POTASSIUM [Concomitant]
     Route: 048
  9. PREDNISONE [Concomitant]
     Route: 048
  10. PRILOSEC [Concomitant]
     Route: 048
  11. HYDROCODONE [Concomitant]
     Route: 048
  12. ZOCOR [Concomitant]
     Route: 048
  13. AMBIEN [Concomitant]
     Dosage: HS
     Route: 048
  14. COLACE [Concomitant]
     Route: 048

REACTIONS (1)
  - COLON CANCER [None]
